FAERS Safety Report 13172242 (Version 1)
Quarter: 2017Q1

REPORT INFORMATION
  Report Type: Spontaneous
  Country: US (occurrence: US)
  Receive Date: 20170131
  Receipt Date: 20170131
  Transmission Date: 20170428
  Serious: No
  Sender: FDA-Public Use
  Company Number: US-ABBVIE-16K-163-1722172-00

PATIENT
  Sex: Female

DRUGS (1)
  1. HUMIRA [Suspect]
     Active Substance: ADALIMUMAB
     Indication: RHEUMATOID ARTHRITIS
     Route: 058

REACTIONS (10)
  - Adverse drug reaction [Unknown]
  - Pain [Recovering/Resolving]
  - Drug ineffective [Unknown]
  - Swelling [Recovering/Resolving]
  - Chondropathy [Unknown]
  - Dysphagia [Unknown]
  - Inflammation [Recovered/Resolved]
  - Skin mass [Unknown]
  - Impaired work ability [Unknown]
  - Urinary tract infection [Unknown]
